FAERS Safety Report 22290198 (Version 1)
Quarter: 2023Q2

REPORT INFORMATION
  Report Type: Report from Study
  Country: UA (occurrence: None)
  Receive Date: 20230505
  Receipt Date: 20230505
  Transmission Date: 20230722
  Serious: Yes (Other)
  Sender: FDA-Public Use
  Company Number: UA-Merck Healthcare KGaA-9399231

PATIENT
  Age: 22 Year
  Sex: Female
  Weight: 59 kg

DRUGS (1)
  1. TERIFLUNOMIDE [Suspect]
     Active Substance: TERIFLUNOMIDE
     Indication: Relapsing multiple sclerosis
     Route: 048
     Dates: start: 20210209, end: 20220114

REACTIONS (1)
  - Neutropenia [Recovering/Resolving]

NARRATIVE: CASE EVENT DATE: 20220111
